FAERS Safety Report 16554426 (Version 1)
Quarter: 2019Q3

REPORT INFORMATION
  Report Type: Spontaneous
  Country: FR (occurrence: FR)
  Receive Date: 20190710
  Receipt Date: 20190710
  Transmission Date: 20191004
  Serious: Yes (Hospitalization)
  Sender: FDA-Public Use
  Company Number: FR-ASTRAZENECA-2019SE98295

PATIENT
  Age: 48 Year
  Sex: Male
  Weight: 90 kg

DRUGS (3)
  1. ZOMIGORO [Suspect]
     Active Substance: ZOLMITRIPTAN
     Indication: MIGRAINE
     Dosage: 1.0DF UNKNOWN
     Route: 048
     Dates: start: 20181003, end: 20181003
  2. PROPECIA [Suspect]
     Active Substance: FINASTERIDE
     Indication: PRODUCT USED FOR UNKNOWN INDICATION
     Dosage: 1.0DF UNKNOWN
     Route: 048
     Dates: start: 20181006, end: 20181006
  3. CIALIS [Suspect]
     Active Substance: TADALAFIL
     Indication: PRODUCT USED FOR UNKNOWN INDICATION
     Dosage: 1.0DF UNKNOWN
     Route: 048
     Dates: start: 20181006, end: 20181006

REACTIONS (1)
  - Ischaemic stroke [Recovered/Resolved]

NARRATIVE: CASE EVENT DATE: 20181006
